FAERS Safety Report 17734296 (Version 2)
Quarter: 2020Q2

REPORT INFORMATION
  Report Type: Report from Study
  Country: US (occurrence: US)
  Receive Date: 20200501
  Receipt Date: 20200603
  Transmission Date: 20200714
  Serious: Yes (Other)
  Sender: FDA-Public Use
  Company Number: NVSC2020US116890

PATIENT
  Sex: Female

DRUGS (2)
  1. COSENTYX [Suspect]
     Active Substance: SECUKINUMAB
     Indication: PSORIASIS
     Dosage: UNK UNK, QMO (AFTER 5 WEEKS ONCE EVERY 4 WEEKS)
     Route: 058
  2. COSENTYX [Suspect]
     Active Substance: SECUKINUMAB
     Indication: PSORIATIC ARTHROPATHY
     Dosage: UNK UNK, QW (FOR 5 WEEKS)
     Route: 058
     Dates: start: 20200304

REACTIONS (4)
  - Psoriasis [Not Recovered/Not Resolved]
  - Arthritis [Unknown]
  - Spinal stenosis [Unknown]
  - Scoliosis [Unknown]
